FAERS Safety Report 17307716 (Version 1)
Quarter: 2020Q1

REPORT INFORMATION
  Report Type: Spontaneous
  Country: JP (occurrence: JP)
  Receive Date: 20200123
  Receipt Date: 20200123
  Transmission Date: 20200409
  Serious: Yes (Other)
  Sender: FDA-Public Use
  Company Number: JP-BAXTER-2020BAX001447

PATIENT
  Age: 14 Year
  Sex: Female

DRUGS (6)
  1. DOXORUBICIN [Concomitant]
     Active Substance: DOXORUBICIN
     Indication: NUT MIDLINE CARCINOMA
     Dosage: 4 COURSES
     Route: 065
  2. CARBOPLATIN. [Concomitant]
     Active Substance: CARBOPLATIN
     Indication: NUT MIDLINE CARCINOMA
     Dosage: 4 COURSES
     Route: 065
  3. PACLITAXEL. [Concomitant]
     Active Substance: PACLITAXEL
     Indication: NUT MIDLINE CARCINOMA
     Dosage: 4 COURSES
     Route: 065
  4. HOLOXAN [Suspect]
     Active Substance: IFOSFAMIDE
     Indication: NUT MIDLINE CARCINOMA
     Route: 065
  5. CELLTOP 100 MG/5 ML, SOLUTION INJECTABLE POUR PERFUSION [Suspect]
     Active Substance: ETOPOSIDE
     Indication: NUT MIDLINE CARCINOMA
     Route: 065
  6. CARBOPLATIN. [Suspect]
     Active Substance: CARBOPLATIN
     Indication: NUT MIDLINE CARCINOMA
     Route: 065

REACTIONS (1)
  - Haematotoxicity [Unknown]
